FAERS Safety Report 25705512 (Version 1)
Quarter: 2025Q3

REPORT INFORMATION
  Report Type: Spontaneous
  Country: US (occurrence: US)
  Receive Date: 20250820
  Receipt Date: 20250820
  Transmission Date: 20251020
  Serious: No
  Sender: ALEXION PHARMACEUTICALS
  Company Number: US-AstraZeneca-CH-00932862AP

PATIENT
  Age: 15 Year

DRUGS (1)
  1. AIRSUPRA [Suspect]
     Active Substance: ALBUTEROL SULFATE\BUDESONIDE
     Route: 065

REACTIONS (5)
  - Product use issue [Unknown]
  - Wrong technique in product usage process [Unknown]
  - Asthma [Unknown]
  - Asthma exercise induced [Unknown]
  - Chest pain [Unknown]
